FAERS Safety Report 18343750 (Version 1)
Quarter: 2020Q4

REPORT INFORMATION
  Report Type: Spontaneous
  Country: US (occurrence: US)
  Receive Date: 20201004
  Receipt Date: 20201004
  Transmission Date: 20210114
  Serious: No
  Sender: FDA-Public Use
  Company Number: None

PATIENT
  Age: 54 Year
  Sex: Female
  Weight: 45.9 kg

DRUGS (8)
  1. PEPCID [Concomitant]
     Active Substance: FAMOTIDINE
  2. PROOEMGA 2000 [Concomitant]
  3. CIPRO [Suspect]
     Active Substance: CIPROFLOXACIN HYDROCHLORIDE
     Indication: ESCHERICHIA INFECTION
     Dosage: ?          QUANTITY:1 TABLET(S);?
     Route: 048
     Dates: start: 20200803, end: 20200806
  4. LEVOTHYROXINE. [Concomitant]
     Active Substance: LEVOTHYROXINE
  5. SOLGAR B2 [Concomitant]
  6. PURE ENCAPSULATIONS ONE MULTIVITAMIN [Concomitant]
  7. VITAL NUTRIENTS B12 [Concomitant]
  8. MAGNEESIUM CITRATE [Concomitant]

REACTIONS (9)
  - Myalgia [None]
  - Gait disturbance [None]
  - Hypoaesthesia [None]
  - Burning sensation [None]
  - Nerve injury [None]
  - Tendon pain [None]
  - Impaired quality of life [None]
  - Arthralgia [None]
  - Paraesthesia [None]

NARRATIVE: CASE EVENT DATE: 20200806
